FAERS Safety Report 24013226 (Version 2)
Quarter: 2024Q3

REPORT INFORMATION
  Report Type: Spontaneous
  Country: JP (occurrence: JP)
  Receive Date: 20240626
  Receipt Date: 20240801
  Transmission Date: 20241017
  Serious: Yes (Hospitalization, Other)
  Sender: NOVARTIS
  Company Number: JP-MTPC-MTPC2024-0012944

PATIENT
  Age: 46 Year
  Sex: Female

DRUGS (1)
  1. FINGOLIMOD HYDROCHLORIDE [Suspect]
     Active Substance: FINGOLIMOD HYDROCHLORIDE
     Indication: Multiple sclerosis
     Dosage: 0.5 MG, QD
     Route: 048
     Dates: start: 2013

REACTIONS (2)
  - Pulmonary tuberculosis [Unknown]
  - Pneumonia cryptococcal [Unknown]

NARRATIVE: CASE EVENT DATE: 20240611
